FAERS Safety Report 12611937 (Version 1)
Quarter: 2016Q3

REPORT INFORMATION
  Report Type: Report from Study
  Country: US (occurrence: US)
  Receive Date: 20160801
  Receipt Date: 20160801
  Transmission Date: 20161109
  Serious: Yes (Death, Hospitalization, Other)
  Sender: FDA-Public Use
  Company Number: US-BAYER-2016-060312

PATIENT
  Age: 67 Year
  Sex: Female
  Weight: 56.69 kg

DRUGS (4)
  1. ADEMPAS [Suspect]
     Active Substance: RIOCIGUAT
     Indication: PULMONARY HYPERTENSION
     Dosage: 2 MG, TID
     Route: 048
  2. WARFARIN [Concomitant]
     Active Substance: WARFARIN
  3. ADEMPAS [Suspect]
     Active Substance: RIOCIGUAT
     Indication: PULMONARY HYPERTENSION
     Dosage: UNK
     Route: 048
     Dates: start: 20160314
  4. ADEMPAS [Suspect]
     Active Substance: RIOCIGUAT
     Indication: PULMONARY HYPERTENSION
     Dosage: 0.5 MG, TID
     Route: 048

REACTIONS (8)
  - Infection [None]
  - Dizziness [Unknown]
  - Device dislocation [Unknown]
  - Hypotension [Unknown]
  - Death [Fatal]
  - Pneumonia [Recovering/Resolving]
  - Blood pressure decreased [Unknown]
  - Constipation [Unknown]

NARRATIVE: CASE EVENT DATE: 20160324
